FAERS Safety Report 10492880 (Version 1)
Quarter: 2014Q4

REPORT INFORMATION
  Report Type: Spontaneous
  Country: US (occurrence: US)
  Receive Date: 20141002
  Receipt Date: 20141002
  Transmission Date: 20150528
  Serious: No
  Sender: FDA-Public Use
  Company Number: US-GLAXOSMITHKLINE-A1076501A

PATIENT
  Age: 78 Year
  Sex: Female
  Weight: 69.1 kg

DRUGS (7)
  1. VENTOLIN [Concomitant]
     Active Substance: ALBUTEROL SULFATE
  2. TYLENOL [Concomitant]
     Active Substance: ACETAMINOPHEN
  3. HYDROCODONE [Concomitant]
     Active Substance: HYDROCODONE
  4. NORCO [Concomitant]
     Active Substance: ACETAMINOPHEN\HYDROCODONE BITARTRATE
  5. LISINOPRIL. [Concomitant]
     Active Substance: LISINOPRIL
  6. ZOLPIDEM [Concomitant]
     Active Substance: ZOLPIDEM\ZOLPIDEM TARTRATE
  7. ADVAIR HFA [Suspect]
     Active Substance: FLUTICASONE PROPIONATE\SALMETEROL XINAFOATE
     Indication: ASTHMA
     Dosage: 1PUFF TWICE PER DAY
     Route: 055

REACTIONS (3)
  - Product quality issue [Unknown]
  - Drug ineffective [Unknown]
  - Ill-defined disorder [Recovered/Resolved]

NARRATIVE: CASE EVENT DATE: 201404
